FAERS Safety Report 5397727-4 (Version None)
Quarter: 2007Q3

REPORT INFORMATION
  Report Type: 
  Country: None (occurrence: None)
  Receive Date: 20070723
  Receipt Date: 20070709
  Transmission Date: 20080115
  Serious: Yes (Hospitalization)
  Sender: FDA-Public Use
  Company Number: GXKR2007NO05959

PATIENT
  Age: 77 Year
  Sex: Male

DRUGS (11)
  1. SIMVASTATIN [Suspect]
     Indication: HYPERCHOLESTEROLAEMIA
     Dosage: 40 MG, ,ORAL
     Route: 048
     Dates: start: 20061111, end: 20070101
  2. RAMIPRIL [Concomitant]
  3. IMDUR [Concomitant]
  4. EMCONCOR COR (BISOPROLOL FUMARATE) [Concomitant]
  5. BUMETANIDE [Concomitant]
  6. SEREVENT [Concomitant]
  7. SPIRIX (SPIRONOLACTONE) [Concomitant]
  8. IMOVANE (ZOPICLONE) [Concomitant]
  9. WARFARIN SODIUM [Concomitant]
  10. NOBLIGAN (TRAMADOL HYDROCHLORIDE) [Concomitant]
  11. ERYTHROMYCIN [Concomitant]

REACTIONS (4)
  - DIARRHOEA [None]
  - MYOPATHY TOXIC [None]
  - PNEUMONIA [None]
  - POLYMYOSITIS [None]
